FAERS Safety Report 21674337 (Version 1)
Quarter: 2022Q4

REPORT INFORMATION
  Report Type: Report from Study
  Country: PL (occurrence: PL)
  Receive Date: 20221202
  Receipt Date: 20221202
  Transmission Date: 20230113
  Serious: Yes (Death)
  Sender: FDA-Public Use
  Company Number: PL-Merck Healthcare KGaA-9353766

PATIENT
  Sex: Male
  Weight: 110 kg

DRUGS (6)
  1. FLUOROURACIL [Suspect]
     Active Substance: FLUOROURACIL
     Indication: Colorectal cancer metastatic
     Dosage: 1000 MILLIGRAM/SQ. METER, BIWEEKLY
     Route: 042
     Dates: start: 20200926, end: 20210720
  2. CETUXIMAB [Suspect]
     Active Substance: CETUXIMAB
     Indication: Colorectal cancer metastatic
     Dosage: 500 MILLIGRAM/SQ. METER, BIWEEKLY
     Route: 042
     Dates: start: 20210719, end: 20210719
  3. CETUXIMAB [Suspect]
     Active Substance: CETUXIMAB
     Dosage: 500 MILLIGRAM/SQ. METER, BIWEEKLY
     Route: 042
     Dates: start: 20200925
  4. IRINOTECAN [Suspect]
     Active Substance: IRINOTECAN
     Indication: Colorectal cancer metastatic
     Dosage: 180 MILLIGRAM/SQ. METER, BIWEEKLY
     Route: 042
     Dates: start: 20200925, end: 20210719
  5. LEUCOVORIN [Suspect]
     Active Substance: LEUCOVORIN
     Indication: Colorectal cancer metastatic
     Dosage: 100 MILLIGRAM/SQ. METER, BIWEEKLY
     Route: 065
     Dates: start: 20200926, end: 20210720
  6. LEUCOVORIN [Suspect]
     Active Substance: LEUCOVORIN
     Dosage: 100 MILLIGRAM/SQ. METER, BIWEEKLY
     Route: 042
     Dates: start: 20200926, end: 20210720

REACTIONS (2)
  - Death [Fatal]
  - Off label use [Unknown]
